FAERS Safety Report 12768748 (Version 2)
Quarter: 2016Q3

REPORT INFORMATION
  Report Type: Spontaneous
  Country: BR (occurrence: BR)
  Receive Date: 20160921
  Receipt Date: 20160921
  Transmission Date: 20161109
  Serious: Yes (Other)
  Sender: FDA-Public Use
  Company Number: BR-ABBVIE-16P-020-1732603-00

PATIENT
  Age: 43 Year
  Sex: Male
  Weight: 72 kg

DRUGS (1)
  1. DEPAKOTE [Suspect]
     Active Substance: DIVALPROEX SODIUM
     Indication: INSOMNIA
     Dosage: DAILY DOSE: 500 MG; AT NIGHT
     Route: 048
     Dates: start: 20160906, end: 20160909

REACTIONS (5)
  - Pruritus generalised [Not Recovered/Not Resolved]
  - Drug hypersensitivity [Unknown]
  - Product use issue [Unknown]
  - Off label use [Unknown]
  - Blister [Not Recovered/Not Resolved]

NARRATIVE: CASE EVENT DATE: 20160906
